FAERS Safety Report 12310708 (Version 3)
Quarter: 2016Q2

REPORT INFORMATION
  Report Type: Report from Study
  Country: US (occurrence: US)
  Receive Date: 20160427
  Receipt Date: 20160607
  Transmission Date: 20160815
  Serious: Yes (Hospitalization)
  Sender: FDA-Public Use
  Company Number: US-ACTELION-A-US2016-133744

PATIENT
  Age: 70 Year
  Sex: Female

DRUGS (5)
  1. TREPROSTINIL DIOLAMIN [Concomitant]
     Active Substance: TREPROSTINIL DIOLAMINE
     Dosage: 0.5 MG, BID
     Route: 048
  2. TREPROSTINIL DIOLAMIN [Concomitant]
     Active Substance: TREPROSTINIL DIOLAMINE
     Dosage: UNK UNK, BID
     Route: 048
  3. TREPROSTINIL DIOLAMIN [Concomitant]
     Active Substance: TREPROSTINIL DIOLAMINE
     Dosage: 0.25 MG, BID
     Route: 048
  4. MACITENTAN [Suspect]
     Active Substance: MACITENTAN
     Indication: PULMONARY ARTERIAL HYPERTENSION
     Dosage: 10 MG, QD
     Route: 048
     Dates: start: 20140519
  5. ADCIRCA [Concomitant]
     Active Substance: TADALAFIL

REACTIONS (7)
  - Vomiting [Unknown]
  - No therapeutic response [Unknown]
  - Headache [Unknown]
  - Diarrhoea [Unknown]
  - Abdominal discomfort [Unknown]
  - Ocular icterus [Unknown]
  - Nausea [Unknown]
